FAERS Safety Report 7077712-7 (Version None)
Quarter: 2010Q4

REPORT INFORMATION
  Report Type: 
  Country: None (occurrence: None)
  Receive Date: 20101101
  Receipt Date: 20101025
  Transmission Date: 20110411
  Serious: Yes (Hospitalization)
  Sender: FDA-Public Use
  Company Number: US-US-EMD SERONO, INC.-230494J09USA

PATIENT
  Sex: Male
  Weight: 60 kg

DRUGS (8)
  1. REBIF [Suspect]
     Indication: MULTIPLE SCLEROSIS
     Route: 058
     Dates: start: 20090810, end: 20090101
  2. REBIF [Suspect]
     Route: 058
     Dates: start: 20090101
  3. NOVOLOG [Concomitant]
     Indication: TYPE 1 DIABETES MELLITUS
     Route: 065
  4. LANTUS [Concomitant]
     Indication: TYPE 1 DIABETES MELLITUS
     Route: 065
  5. PLAVIX [Concomitant]
     Indication: MYOCARDIAL INFARCTION
     Route: 065
  6. BLOOD PRESSURE MEDICATION [Concomitant]
     Indication: HYPERTENSION
     Route: 065
  7. UNSPECIFIED MEDICATION [Concomitant]
     Route: 065
  8. ACETAMINOPHEN [Concomitant]
     Indication: PREMEDICATION
     Route: 065
     Dates: start: 20090101

REACTIONS (9)
  - BLOOD GLUCOSE DECREASED [None]
  - CONFUSIONAL STATE [None]
  - DIABETIC KETOACIDOSIS [None]
  - DIARRHOEA [None]
  - DYSARTHRIA [None]
  - HYPERSOMNIA [None]
  - MYOCARDIAL INFARCTION [None]
  - PERIPHERAL COLDNESS [None]
  - STENT MALFUNCTION [None]
